FAERS Safety Report 24084293 (Version 1)
Quarter: 2024Q3

REPORT INFORMATION
  Report Type: Spontaneous
  Country: EG (occurrence: EG)
  Receive Date: 20240712
  Receipt Date: 20240712
  Transmission Date: 20241017
  Serious: Yes (Life-Threatening, Hospitalization, Other)
  Sender: HIKMA
  Company Number: EG-HIKMA PHARMACEUTICALS USA INC.-EG-H14001-24-06184

PATIENT

DRUGS (2)
  1. CISPLATIN [Suspect]
     Active Substance: CISPLATIN
     Indication: Ovarian cancer
     Dosage: 128 MG DIVIDED TO 4 DAYS SO DOSE WAS 24 MG PER DAY FROM DAY 1-4, EVERY 21 DAYS
     Route: 041
     Dates: start: 20240427
  2. CISPLATIN [Suspect]
     Active Substance: CISPLATIN
     Dosage: 128 MG DIVIDED TO 4 DAYS SO DOSE WAS 24 MG PER DAY FROM DAY 1-4, EVERY 21 DAYS
     Route: 041
     Dates: start: 20240629

REACTIONS (5)
  - Drug hypersensitivity [Unknown]
  - Dyspnoea [Unknown]
  - Cyanosis [Unknown]
  - Lip swelling [Unknown]
  - Bronchospasm [Unknown]

NARRATIVE: CASE EVENT DATE: 20240629
